FAERS Safety Report 7859842 (Version 3)
Quarter: 2016Q4

REPORT INFORMATION
  Report Type: Spontaneous
  Country: DE (occurrence: FI)
  Receive Date: 20110317
  Receipt Date: 20161123
  Transmission Date: 20170207
  Serious: Yes (Death, Life-Threatening)
  Sender: FDA-Public Use
  Company Number: DE-JNJFOC-980818-003013006

PATIENT
  Age: 56 Year
  Sex: Male

DRUGS (13)
  1. LORAZEPAM. [Concomitant]
     Active Substance: LORAZEPAM
     Route: 030
     Dates: start: 19980307, end: 19980307
  2. IBUPROFEN. [Concomitant]
     Active Substance: IBUPROFEN
     Route: 030
     Dates: start: 19980302, end: 19980303
  3. KETOPROFEN. [Concomitant]
     Active Substance: KETOPROFEN
     Route: 065
     Dates: start: 19980308, end: 19980308
  4. DIXYRAZINE [Concomitant]
     Active Substance: DIXYRAZINE
     Route: 048
     Dates: start: 19980303, end: 19980308
  5. DIAZEPAM. [Concomitant]
     Active Substance: DIAZEPAM
     Route: 048
     Dates: start: 19980308, end: 19980308
  6. LORAZEPAM. [Concomitant]
     Active Substance: LORAZEPAM
     Route: 030
     Dates: start: 19980305, end: 19980305
  7. HALOPERIDOL. [Concomitant]
     Active Substance: HALOPERIDOL
     Route: 054
     Dates: start: 19980307, end: 19980308
  8. ATENOLOL. [Concomitant]
     Active Substance: ATENOLOL
     Route: 065
     Dates: start: 19980308, end: 19980308
  9. TRAMADOL HYDROCHLORIDE IR [Suspect]
     Active Substance: TRAMADOL HYDROCHLORIDE
     Indication: HUMERUS FRACTURE
     Route: 065
     Dates: start: 19980303, end: 19980308
  10. ALCOHOL. [Suspect]
     Active Substance: ALCOHOL
     Indication: PRODUCT USED FOR UNKNOWN INDICATION
     Route: 065
  11. DIAZEPAM. [Concomitant]
     Active Substance: DIAZEPAM
     Route: 030
     Dates: start: 19980308, end: 19980308
  12. DIXYRAZINE [Concomitant]
     Active Substance: DIXYRAZINE
     Route: 030
     Dates: start: 19980304, end: 19980305
  13. HALOPERIDOL. [Concomitant]
     Active Substance: HALOPERIDOL
     Route: 030
     Dates: start: 19980305, end: 19980307

REACTIONS (11)
  - Cyanosis [Unknown]
  - Muscle spasms [Unknown]
  - Arrhythmia [Unknown]
  - Alcohol withdrawal syndrome [Unknown]
  - Pyrexia [Unknown]
  - Atrial tachycardia [Fatal]
  - Drug level increased [Unknown]
  - Hyperhidrosis [Unknown]
  - Torticollis [Unknown]
  - Delirium [Unknown]
  - Atrial flutter [Unknown]

NARRATIVE: CASE EVENT DATE: 19980308
